FAERS Safety Report 14182804 (Version 1)
Quarter: 2017Q4

REPORT INFORMATION
  Report Type: Spontaneous
  Country: FR (occurrence: FR)
  Receive Date: 20171113
  Receipt Date: 20171113
  Transmission Date: 20180321
  Serious: Yes (Hospitalization, Other)
  Sender: FDA-Public Use
  Company Number: FR-MYLANLABS-2017M1071960

PATIENT
  Age: 29 Year
  Sex: Male

DRUGS (3)
  1. METOPIMAZINE [Suspect]
     Active Substance: METOPIMAZINE
     Indication: PROPHYLAXIS OF NAUSEA AND VOMITING
     Dosage: 7.5 MG, UNK
     Route: 048
     Dates: start: 20150608
  2. CALCITONIN SALMON MYLAN [Suspect]
     Active Substance: CALCITONIN SALMON
     Indication: COMPLEX REGIONAL PAIN SYNDROME
     Dosage: 50 IU, UNK
     Route: 058
     Dates: start: 20150608
  3. DESLORATADINE. [Concomitant]
     Active Substance: DESLORATADINE
     Indication: PRODUCT USED FOR UNKNOWN INDICATION
     Dosage: UNK
     Route: 065

REACTIONS (2)
  - Product use in unapproved indication [Recovering/Resolving]
  - Generalised tonic-clonic seizure [Recovering/Resolving]
